FAERS Safety Report 17186009 (Version 1)
Quarter: 2019Q4

REPORT INFORMATION
  Report Type: Spontaneous
  Country: US (occurrence: US)
  Receive Date: 20191220
  Receipt Date: 20191220
  Transmission Date: 20200122
  Serious: No
  Sender: FDA-Public Use
  Company Number: US-BAYER-2019-233293

PATIENT
  Age: 54 Year
  Sex: Female

DRUGS (1)
  1. BETASERON [Suspect]
     Active Substance: INTERFERON BETA-1B
     Dosage: 0.25 MG, TIW
     Route: 058
     Dates: start: 201701

REACTIONS (2)
  - Inappropriate schedule of product administration [None]
  - Off label use [None]

NARRATIVE: CASE EVENT DATE: 20191219
